FAERS Safety Report 21637569 (Version 1)
Quarter: 2022Q4

REPORT INFORMATION
  Report Type: Spontaneous
  Country: US (occurrence: US)
  Receive Date: 20221124
  Receipt Date: 20221124
  Transmission Date: 20230113
  Serious: No
  Sender: FDA-Public Use
  Company Number: US-BAUSCH-BL-2022-025600

PATIENT
  Age: 40 Year
  Sex: Female
  Weight: 81.720 kg

DRUGS (10)
  1. DESMOPRESSIN ACETATE [Suspect]
     Active Substance: DESMOPRESSIN ACETATE
     Indication: Diabetes insipidus
     Dosage: 1 SPRAY IN EACH NOSTRIL 4 TIMES DAILY ABOUT 20 YEARS AGO
     Route: 045
  2. LEVOXYL [Concomitant]
     Active Substance: LEVOTHYROXINE SODIUM
     Indication: Product used for unknown indication
  3. PREDNISONE [Concomitant]
     Active Substance: PREDNISONE
     Indication: Product used for unknown indication
  4. ENSKYCE [Concomitant]
     Active Substance: DESOGESTREL\ETHINYL ESTRADIOL
     Indication: Product used for unknown indication
  5. TRAZODONE [Concomitant]
     Active Substance: TRAZODONE HYDROCHLORIDE
     Indication: Product used for unknown indication
  6. CLARITIN [Concomitant]
     Active Substance: LORATADINE
     Indication: Product used for unknown indication
     Dosage: CLARITIN
  7. TYLENOL [Concomitant]
     Active Substance: ACETAMINOPHEN
     Indication: Product used for unknown indication
  8. CORTEF [Concomitant]
     Active Substance: HYDROCORTISONE
     Indication: Product used for unknown indication
     Dosage: CORTEF
  9. BENADRYL [Concomitant]
     Active Substance: DIPHENHYDRAMINE HYDROCHLORIDE
     Indication: Product used for unknown indication
     Dosage: BENADRYL
  10. EPIPEN [EPINEPHRINE] [Concomitant]
     Indication: Product used for unknown indication
     Dosage: EPIPEN

REACTIONS (9)
  - Pollakiuria [Unknown]
  - Thirst [Unknown]
  - Somnolence [Unknown]
  - Dehydration [Unknown]
  - Fatigue [Unknown]
  - Blood sodium decreased [Unknown]
  - Therapeutic product effect decreased [Unknown]
  - Product packaging quantity issue [Unknown]
  - Product quality issue [Unknown]
